FAERS Safety Report 5843185-2 (Version None)
Quarter: 2008Q3

REPORT INFORMATION
  Report Type: 
  Country: None (occurrence: None)
  Receive Date: 20080813
  Receipt Date: 20080804
  Transmission Date: 20090109
  Serious: Yes (Other)
  Sender: FDA-Public Use
  Company Number: PHHO2007IL15855

PATIENT
  Sex: Female
  Weight: 55.2 kg

DRUGS (2)
  1. LDT600 LDT+TAB [Suspect]
     Indication: HEPATITIS B
     Dosage: 600 MG, UNK
     Route: 048
     Dates: start: 20070520, end: 20070926
  2. PEGASYS [Suspect]
     Indication: HEPATITIS B
     Dosage: 180 MG, UNK
     Route: 058
     Dates: start: 20070520, end: 20070926

REACTIONS (2)
  - PAIN IN EXTREMITY [None]
  - PERIPHERAL SENSORY NEUROPATHY [None]
